FAERS Safety Report 8308095-X (Version None)
Quarter: 2012Q2

REPORT INFORMATION
  Report Type: 
  Country: None (occurrence: None)
  Receive Date: 20120424
  Receipt Date: 20120409
  Transmission Date: 20120825
  Serious: Yes (Hospitalization, Other)
  Sender: FDA-Public Use
  Company Number: TT-WATSON-2012-06738

PATIENT
  Age: 59 Year
  Sex: Male

DRUGS (1)
  1. PREDNISOLONE [Suspect]
     Indication: ARTHRALGIA
     Dosage: 10 MG, DAILY
     Route: 048

REACTIONS (4)
  - DIVERTICULUM [None]
  - ADRENAL INSUFFICIENCY [None]
  - SELF-MEDICATION [None]
  - GASTROINTESTINAL HYPOMOTILITY [None]
